FAERS Safety Report 23839727 (Version 2)
Quarter: 2024Q2

REPORT INFORMATION
  Report Type: Spontaneous
  Country: US (occurrence: None)
  Receive Date: 20240510
  Receipt Date: 20240626
  Transmission Date: 20240716
  Serious: No
  Sender: FDA-Public Use
  Company Number: 2024A092768

PATIENT
  Age: 30300 Day
  Sex: Male

DRUGS (1)
  1. BYDUREON BCISE [Suspect]
     Active Substance: EXENATIDE
     Dosage: 2.0MG UNKNOWN

REACTIONS (3)
  - Injection site haemorrhage [Unknown]
  - Accidental exposure to product [Unknown]
  - Device issue [Unknown]

NARRATIVE: CASE EVENT DATE: 20240410
